FAERS Safety Report 18559649 (Version 1)
Quarter: 2020Q4

REPORT INFORMATION
  Report Type: Report from Study
  Country: CA (occurrence: CA)
  Receive Date: 20201130
  Receipt Date: 20201130
  Transmission Date: 20210114
  Serious: Yes (Hospitalization)
  Sender: FDA-Public Use
  Company Number: CA-ELI_LILLY_AND_COMPANY-CA202011008153

PATIENT
  Sex: Male

DRUGS (1)
  1. OLUMIANT [Suspect]
     Active Substance: BARICITINIB
     Indication: RHEUMATOID ARTHRITIS
     Dosage: 4 MG, DAILY
     Route: 048
     Dates: start: 20200510

REACTIONS (6)
  - Arthritis [Unknown]
  - Pyrexia [Unknown]
  - Respiratory disorder [Unknown]
  - Prostatitis [Unknown]
  - Diarrhoea [Unknown]
  - Headache [Unknown]
